FAERS Safety Report 6998382 (Version 2)
Quarter: 2020Q3

REPORT INFORMATION
  Report Type: Report from Study
  Country: US (occurrence: US)
  Receive Date: 20090520
  Receipt Date: 20090608
  Transmission Date: 20201105
  Serious: Yes (Hospitalization)
  Sender: FDA-Public Use
  Company Number: US-ROCHE-632924

PATIENT
  Age: 37 Year
  Sex: Female
  Weight: 78 kg

DRUGS (4)
  1. IBANDRONIC ACID. [Suspect]
     Active Substance: IBANDRONIC ACID
     Dosage: HELD FOR TWO DAYS WHILE IN HOSPITAL
     Route: 048
     Dates: start: 20081001, end: 20090421
  2. IBANDRONIC ACID. [Suspect]
     Active Substance: IBANDRONIC ACID
     Route: 048
     Dates: start: 20090423
  3. AROMASIN [Concomitant]
     Active Substance: EXEMESTANE
  4. AROMASIN [Concomitant]
     Active Substance: EXEMESTANE

REACTIONS (4)
  - Abdominal pain [Recovered/Resolved]
  - Dehydration [Recovered/Resolved]
  - Constipation [Recovered/Resolved]
  - Diarrhoea [None]

NARRATIVE: CASE EVENT DATE: 20090421
